FAERS Safety Report 8413589-2 (Version None)
Quarter: 2012Q2

REPORT INFORMATION
  Report Type: 
  Country: None (occurrence: None)
  Receive Date: 20120605
  Receipt Date: 20120524
  Transmission Date: 20120825
  Serious: Yes (Hospitalization)
  Sender: FDA-Public Use
  Company Number: JP-ROCHE-1029600

PATIENT
  Sex: Male

DRUGS (21)
  1. RABEPRAZOLE SODIUM [Concomitant]
     Indication: PROPHYLAXIS
     Route: 048
  2. ACTEMRA [Suspect]
     Indication: RHEUMATOID ARTHRITIS
     Route: 041
     Dates: start: 20071225, end: 20090105
  3. ACTEMRA [Suspect]
     Route: 041
     Dates: start: 20090223, end: 20090223
  4. PREDNISOLONE [Concomitant]
     Route: 048
     Dates: start: 20090115
  5. RHEUMATREX [Concomitant]
     Indication: RHEUMATOID ARTHRITIS
     Dosage: THREE TIMES A WEEK
     Route: 048
     Dates: start: 20080606, end: 20080827
  6. DOXAZOSIN MESYLATE [Concomitant]
     Indication: HYPERTENSION
     Route: 048
  7. MICARDIS [Concomitant]
     Indication: HYPERTENSION
     Route: 048
  8. GASLON N [Concomitant]
     Indication: PROPHYLAXIS
     Route: 048
  9. ALENDRONATE SODIUM [Concomitant]
     Indication: PROPHYLAXIS
     Route: 048
  10. PREDNISOLONE [Concomitant]
     Indication: RHEUMATOID ARTHRITIS
     Route: 048
     Dates: end: 20080703
  11. VITAMIN B12 [Concomitant]
     Indication: HYPOAESTHESIA
     Route: 048
  12. BASEN [Concomitant]
     Indication: DIABETES MELLITUS
     Route: 048
  13. AMARYL [Concomitant]
     Indication: DIABETES MELLITUS
     Route: 048
  14. VOLTAREN-XR [Concomitant]
     Indication: RHEUMATOID ARTHRITIS
     Route: 048
  15. ACTEMRA [Suspect]
     Route: 041
     Dates: start: 20090323, end: 20100128
  16. TOFRANIL [Concomitant]
     Route: 048
  17. CLARITHROMYCIN [Concomitant]
     Indication: BRONCHITIS CHRONIC
     Route: 048
  18. PREDNISOLONE [Concomitant]
     Route: 048
     Dates: start: 20080704, end: 20090114
  19. ACTEMRA [Suspect]
     Dosage: DOSAGE IS UNCERTAIN.
     Route: 041
     Dates: start: 20100101
  20. RHEUMATREX [Concomitant]
     Dosage: THREE TIMES A WEEK
     Route: 048
     Dates: start: 20080828
  21. WARFARIN SODIUM [Concomitant]
     Indication: DEEP VEIN THROMBOSIS
     Route: 048

REACTIONS (2)
  - NASOPHARYNGITIS [None]
  - RIB FRACTURE [None]
